FAERS Safety Report 5914656-5 (Version None)
Quarter: 2008Q4

REPORT INFORMATION
  Report Type: 
  Country: None (occurrence: None)
  Receive Date: 20081010
  Receipt Date: 20081007
  Transmission Date: 20090506
  Serious: Yes (Death)
  Sender: FDA-Public Use
  Company Number: JP-BAYER-200812393BYL

PATIENT
  Age: 67 Year
  Sex: Male
  Weight: 66 kg

DRUGS (5)
  1. CIPROXAN-I.V. [Suspect]
     Indication: SEPSIS
     Dosage: TOTAL DAILY DOSE: 600 MG
     Route: 041
     Dates: start: 20080602, end: 20080605
  2. PRODIF [Concomitant]
     Indication: SEPSIS
     Dosage: TOTAL DAILY DOSE: 400 MG
     Route: 042
     Dates: start: 20080608, end: 20080609
  3. PRODIF [Concomitant]
     Dosage: TOTAL DAILY DOSE: 200 MG
     Route: 042
     Dates: start: 20080610, end: 20080611
  4. GLOVENIN-I [Concomitant]
     Dosage: TOTAL DAILY DOSE: 5 G
     Route: 042
     Dates: start: 20080602, end: 20080604
  5. NONTHRON [Concomitant]
     Dosage: TOTAL DAILY DOSE: 1500 U
     Route: 042
     Dates: start: 20080604, end: 20080606

REACTIONS (2)
  - MULTI-ORGAN FAILURE [None]
  - RENAL FAILURE ACUTE [None]
